FAERS Safety Report 25305360 (Version 2)
Quarter: 2025Q4

REPORT INFORMATION
  Report Type: Report from Study
  Country: EG (occurrence: EG)
  Receive Date: 20250513
  Receipt Date: 20251028
  Transmission Date: 20260118
  Serious: Yes (Other)
  Sender: NOVARTIS
  Company Number: EG-002147023-NVSC2025EG076487

PATIENT
  Age: 32 Year
  Sex: Male
  Weight: 68 kg

DRUGS (9)
  1. GILENYA [Suspect]
     Active Substance: FINGOLIMOD HYDROCHLORIDE
     Indication: Multiple sclerosis
     Dosage: 0.5 MG, QD, ONE CAPSULE ONCE DAILY
     Route: 048
     Dates: start: 2016
  2. GILENYA [Suspect]
     Active Substance: FINGOLIMOD HYDROCHLORIDE
     Dosage: 0.5 MG, QD
     Route: 048
     Dates: start: 2019
  3. GILENYA [Suspect]
     Active Substance: FINGOLIMOD HYDROCHLORIDE
     Dosage: 0.5 MG, OTHER, EVERY OTHER DAY
     Route: 048
     Dates: start: 201902
  4. TORSEMIDE [Concomitant]
     Active Substance: TORSEMIDE
     Indication: Diuretic therapy
     Dosage: 10 DAYS AGO, 5 MG, QD, TABLET, ? TABLET ONCE DAILY
     Route: 048
  5. CEREBROLYSIN [Concomitant]
     Active Substance: CEREBROLYSIN
     Indication: Blood disorder
     Dosage: SOLUTION FOR INFUSION, QD
     Route: 042
     Dates: start: 201802
  6. CEREBROLYSIN [Concomitant]
     Active Substance: CEREBROLYSIN
     Dosage: SOLUTION FOR INFUSION, QD
     Route: 042
     Dates: start: 20230927
  7. SOLU-MEDROL [Concomitant]
     Active Substance: METHYLPREDNISOLONE SODIUM SUCCINATE
     Indication: Blood disorder
     Dosage: UNK, QD
     Route: 042
     Dates: start: 201802
  8. RINGERS SOLUTION [Concomitant]
     Active Substance: CALCIUM CHLORIDE\POTASSIUM CHLORIDE\SODIUM CHLORIDE
     Indication: Blood disorder
     Dosage: SOLUTION FOR INFUSION, QD
     Route: 042
     Dates: start: 201802
  9. RINGERS SOLUTION [Concomitant]
     Active Substance: CALCIUM CHLORIDE\POTASSIUM CHLORIDE\SODIUM CHLORIDE
     Dosage: SOLUTION FOR INFUSION, QD
     Route: 042
     Dates: start: 20230927

REACTIONS (2)
  - Anaemia [Recovered/Resolved]
  - Anaemia [Recovered/Resolved]

NARRATIVE: CASE EVENT DATE: 20190201
